FAERS Safety Report 20230565 (Version 1)
Quarter: 2021Q4

REPORT INFORMATION
  Report Type: Spontaneous
  Country: US (occurrence: US)
  Receive Date: 20211227
  Receipt Date: 20211227
  Transmission Date: 20220303
  Serious: Yes (Hospitalization)
  Sender: FDA-Public Use
  Company Number: US-JNJFOC-20211242009

PATIENT
  Age: 41 Year
  Sex: Female

DRUGS (2)
  1. ACETAMINOPHEN [Suspect]
     Active Substance: ACETAMINOPHEN
     Indication: Product used for unknown indication
     Dosage: ACETAMINOPHEN 1000 MG TO 2000 MG EVERY 4 H OVER THE LAST 3 DAYS
     Route: 065
  2. PRENATAL VITAMINS [ASCORBIC ACID;BIOTIN;MINERALS NOS;NICOTINIC ACID;RE [Concomitant]
     Indication: Product used for unknown indication
     Route: 065

REACTIONS (2)
  - Acute fatty liver of pregnancy [Recovered/Resolved]
  - Exposure during pregnancy [Unknown]
